FAERS Safety Report 14763547 (Version 1)
Quarter: 2018Q2

REPORT INFORMATION
  Report Type: Report from Study
  Country: US (occurrence: US)
  Receive Date: 20180416
  Receipt Date: 20180416
  Transmission Date: 20180711
  Serious: Yes (Death)
  Sender: FDA-Public Use
  Company Number: US-MYLANLABS-2018M1023581

PATIENT
  Age: 40 Year
  Sex: Male

DRUGS (5)
  1. CISPLATIN. [Suspect]
     Active Substance: CISPLATIN
     Indication: MEDULLOBLASTOMA
     Dosage: 1- CYCLE (CISPLATIN, LOMUSTINE AND VINCRISTINE CHEMOTHERAPY)
     Route: 065
  2. VINCRISTINE [Suspect]
     Active Substance: VINCRISTINE
     Indication: MEDULLOBLASTOMA
     Dosage: 8- CYCLES
     Route: 065
  3. CISPLATIN. [Suspect]
     Active Substance: CISPLATIN
     Dosage: 7 CYCLES (CISPLATIN, LOMUSTINE AND VINCRISTINE CHEMOTHERAPY)
     Route: 065
  4. LOMUSTINE. [Suspect]
     Active Substance: LOMUSTINE
     Indication: MEDULLOBLASTOMA
     Dosage: 1- CYCLE (CISPLATIN, LOMUSTINE AND VINCRISTINE CHEMOTHERAPY)
     Route: 065
  5. LOMUSTINE. [Suspect]
     Active Substance: LOMUSTINE
     Dosage: 7 CYCLES- (CICPLATIN AND LOMUSTINE CHEMOTHERAPY)
     Route: 065

REACTIONS (2)
  - Seizure [Fatal]
  - Craniocerebral injury [Fatal]
